FAERS Safety Report 9064465 (Version 2)
Quarter: 2013Q1

REPORT INFORMATION
  Report Type: Spontaneous
  Country: BR (occurrence: BR)
  Receive Date: 20130128
  Receipt Date: 20130329
  Transmission Date: 20140127
  Serious: Yes (Hospitalization)
  Sender: FDA-Public Use
  Company Number: PHHY2013BR006569

PATIENT
  Sex: Female

DRUGS (5)
  1. DIOVAN [Suspect]
     Indication: BLOOD PRESSURE
     Dosage: 1 DF, (320 MG) DAILY
     Route: 048
  2. SERTRALINE [Concomitant]
     Indication: ANXIETY
     Dosage: 1 DF, (50 MG) DAILY
     Route: 048
  3. CLONAZEPAM [Concomitant]
     Indication: SLEEP DISORDER
     Dosage: 6 DRP, (2 MG) DAILY
     Route: 048
  4. SPIRONOLACTONE [Concomitant]
     Dosage: 1 DF, (50 MG)DAILY
     Route: 048
     Dates: start: 201212
  5. AMLODIPINE [Concomitant]
     Dosage: 1 DF, (5 MG) DAILY
     Route: 048

REACTIONS (1)
  - Influenza [Recovering/Resolving]
